FAERS Safety Report 10283276 (Version 1)
Quarter: 2014Q3

REPORT INFORMATION
  Report Type: Report from Study
  Country: US (occurrence: US)
  Receive Date: 20140708
  Receipt Date: 20140708
  Transmission Date: 20150326
  Serious: Yes (Other)
  Sender: FDA-Public Use
  Company Number: US-ROCHE-1373463

PATIENT
  Age: 42 Year
  Sex: Female
  Weight: 77.18 kg

DRUGS (12)
  1. EPIPEN [Concomitant]
     Active Substance: EPINEPHRINE
     Dosage: 0.3 MG/0.3 ML AS NEEDED
     Route: 065
  2. ASTHALIN [Concomitant]
     Route: 065
  3. PREDNISONE. [Concomitant]
     Active Substance: PREDNISONE
     Dosage: AM
     Route: 065
  4. SINGULAIR [Concomitant]
     Active Substance: MONTELUKAST SODIUM
     Route: 065
  5. ZITHROMAX [Concomitant]
     Active Substance: AZITHROMYCIN DIHYDRATE
     Route: 065
  6. ALBUTEROL. [Concomitant]
     Active Substance: ALBUTEROL
     Route: 065
  7. BENADRYL [Concomitant]
     Active Substance: DIPHENHYDRAMINE HYDROCHLORIDE
     Route: 065
  8. XOLAIR [Suspect]
     Active Substance: OMALIZUMAB
     Indication: ASTHMA
     Route: 058
     Dates: start: 2005
  9. ADVAIR HFA [Suspect]
     Active Substance: FLUTICASONE PROPIONATE\SALMETEROL XINAFOATE
     Indication: PRODUCT USED FOR UNKNOWN INDICATION
     Route: 065
  10. PULMICORT RESPULES [Concomitant]
     Active Substance: BUDESONIDE
     Dosage: 25 MG/2 ML 1 RESPULE BID
     Route: 065
  11. XOPENEX HFA [Concomitant]
     Active Substance: LEVALBUTEROL TARTRATE
     Dosage: 45 MCG 1 PUFF Q 6 HRS PN
     Route: 065
  12. ALLEGRA [Concomitant]
     Active Substance: FEXOFENADINE HYDROCHLORIDE
     Route: 065

REACTIONS (11)
  - Palpitations [Unknown]
  - Burning sensation [Unknown]
  - Tachycardia [Unknown]
  - Rheumatoid factor increased [Unknown]
  - Eye allergy [Unknown]
  - Anaphylactic reaction [Unknown]
  - Upper respiratory tract infection [Unknown]
  - Dyspepsia [Unknown]
  - Asthma [Unknown]
  - Hypersensitivity [Unknown]
  - Rhinitis [Unknown]

NARRATIVE: CASE EVENT DATE: 200605
